FAERS Safety Report 24261267 (Version 3)
Quarter: 2024Q4

REPORT INFORMATION
  Report Type: Report from Study
  Country: US (occurrence: US)
  Receive Date: 20240829
  Receipt Date: 20241122
  Transmission Date: 20250115
  Serious: Yes (Other)
  Sender: NOVARTIS
  Company Number: US-002147023-NVSC2024US087975

PATIENT
  Sex: Male

DRUGS (2)
  1. KESIMPTA [Suspect]
     Active Substance: OFATUMUMAB
     Indication: Multiple sclerosis
     Dosage: 20 MG, QMO, STARTING AT WEEK 4 AS DIRECTED
     Route: 058
  2. KESIMPTA [Suspect]
     Active Substance: OFATUMUMAB
     Indication: Relapsing multiple sclerosis
     Dosage: UNK
     Route: 065
     Dates: start: 20240401

REACTIONS (8)
  - Renal impairment [Unknown]
  - Muscular weakness [Unknown]
  - Fatigue [Unknown]
  - Condition aggravated [Unknown]
  - Tinnitus [Unknown]
  - Hypoaesthesia [Unknown]
  - Weight increased [Unknown]
  - Arthritis [Unknown]
